FAERS Safety Report 8603914-1 (Version None)
Quarter: 2012Q3

REPORT INFORMATION
  Report Type: 
  Country: None (occurrence: None)
  Receive Date: 20120820
  Receipt Date: 20120814
  Transmission Date: 20120928
  Serious: Yes (Hospitalization, Other)
  Sender: FDA-Public Use
  Company Number: US-AMGEN-USASP2012051722

PATIENT
  Age: 54 Year
  Sex: Female

DRUGS (1)
  1. ENBREL [Suspect]
     Indication: PSORIATIC ARTHROPATHY
     Dosage: 50 MG, QWK
     Dates: start: 20040218, end: 20120501

REACTIONS (3)
  - TYPE 2 DIABETES MELLITUS [None]
  - OESOPHAGEAL VARICES HAEMORRHAGE [None]
  - NON-ALCOHOLIC STEATOHEPATITIS [None]
